FAERS Safety Report 6125262-4 (Version None)
Quarter: 2009Q1

REPORT INFORMATION
  Report Type: 
  Country: None (occurrence: None)
  Receive Date: 20090320
  Receipt Date: 20090310
  Transmission Date: 20090719
  Serious: Yes (Hospitalization, Other)
  Sender: FDA-Public Use
  Company Number: PHHY2009CA09302

PATIENT
  Sex: Female

DRUGS (13)
  1. CLOZARIL [Suspect]
     Indication: SCHIZOPHRENIA
     Dosage: 50 MG DAILY
     Route: 048
     Dates: start: 20070729
  2. CLOZARIL [Suspect]
     Dosage: 300 MG DAILY
     Route: 048
     Dates: end: 20090227
  3. CITALOPRAM HYDROBROMIDE [Concomitant]
     Dosage: 40 MG DAILY
     Route: 048
  4. CYANOCOBALAMIN [Concomitant]
     Dosage: 1000 UG DAILY
     Route: 048
  5. LANSOPRAZOLE [Concomitant]
     Dosage: 30 MG, BID
     Route: 048
  6. LEVOTHYROXINE SODIUM [Concomitant]
     Dosage: 0.075 MG DAILY AT AM
     Route: 048
  7. LITHIUM CARBONATE [Concomitant]
     Dosage: 300 MG, QHS
     Route: 048
  8. MULTI-VITAMINS [Concomitant]
     Dosage: 1 TAB DAILY
     Route: 048
  9. POTASSIUM CHLORIDE [Concomitant]
     Dosage: 16 UG DAILY
     Route: 048
  10. TRAZODONE HYDROCHLORIDE [Concomitant]
     Dosage: 50 MG, QHS
     Route: 048
  11. ACETAMINOPHEN [Concomitant]
     Dosage: 500-1000 MG QID/PRN
     Route: 048
  12. ACETAMINOPHEN W/CAFFEINE/DIHYDROCODEINE [Concomitant]
     Dosage: 1-2 TAB BID/PRN
  13. SALBUTAMOL SULFATE [Concomitant]
     Dosage: 2.5 MG QIH/PRN

REACTIONS (9)
  - DRUG LEVEL INCREASED [None]
  - ELECTROCARDIOGRAM QT PROLONGED [None]
  - HAEMATOCRIT DECREASED [None]
  - HAEMOGLOBIN DECREASED [None]
  - INFECTION [None]
  - NEUTROPHIL COUNT INCREASED [None]
  - PLATELET COUNT INCREASED [None]
  - RED BLOOD CELL COUNT DECREASED [None]
  - WHITE BLOOD CELL COUNT INCREASED [None]
